FAERS Safety Report 20405350 (Version 1)
Quarter: 2022Q1

REPORT INFORMATION
  Report Type: Spontaneous
  Country: NL (occurrence: NL)
  Receive Date: 20220131
  Receipt Date: 20220131
  Transmission Date: 20220423
  Serious: Yes (Other)
  Sender: FDA-Public Use
  Company Number: None

PATIENT
  Sex: Female

DRUGS (1)
  1. DICLOFENAC [Suspect]
     Active Substance: DICLOFENAC
     Indication: Pain
     Dosage: 25 MG (MILLIGRAM),DICLOFENAC POTASSIUM TABLET COATED 25MG / BRAND NAME NOT SPECIFIED,THERAPY END DAT
     Route: 065
     Dates: start: 2020

REACTIONS (2)
  - Suicidal ideation [Recovered/Resolved]
  - Panic disorder [Recovered/Resolved]
